FAERS Safety Report 7707495-6 (Version None)
Quarter: 2011Q3

REPORT INFORMATION
  Report Type: 
  Country: None (occurrence: None)
  Receive Date: 20110819
  Receipt Date: 20110810
  Transmission Date: 20111222
  Serious: Yes (Other)
  Sender: FDA-Public Use
  Company Number: 121114

PATIENT
  Age: 76 Year
  Sex: Female
  Weight: 77.1115 kg

DRUGS (1)
  1. METHOTREXATE [Suspect]
     Indication: AUTOIMMUNE DISORDER
     Dosage: 1ML SUBCUTANEOUSLY ONCE WEEKLY
     Route: 058
     Dates: start: 20110518, end: 20110810

REACTIONS (2)
  - PRODUCT QUALITY ISSUE [None]
  - MEDICATION ERROR [None]
